FAERS Safety Report 5066500-9 (Version None)
Quarter: 2006Q3

REPORT INFORMATION
  Report Type: 
  Country: None (occurrence: None)
  Receive Date: 20060801
  Receipt Date: 20060721
  Transmission Date: 20061208
  Serious: Yes (Hospitalization)
  Sender: FDA-Public Use
  Company Number: FR-BRISTOL-MYERS SQUIBB COMPANY-13451992

PATIENT
  Age: 40 Year
  Sex: Female

DRUGS (2)
  1. ABILIFY [Suspect]
     Indication: SCHIZOPHRENIA
     Dosage: DRUG STOPPED PRIOR TO EARLY 2006, AND NOT RESTARTED UNTIL JUL-2006.
     Route: 048
     Dates: end: 20060701
  2. ZOLOFT [Suspect]
     Dosage: DRUG STOPPED PRIOR TO EARLY 2006, AND NOT RESTARTED UNTIL JUL-2006.
     Dates: end: 20060701

REACTIONS (4)
  - ALANINE AMINOTRANSFERASE INCREASED [None]
  - ASPARTATE AMINOTRANSFERASE INCREASED [None]
  - HAEMOLYSIS [None]
  - THROMBOCYTOPENIA [None]
